FAERS Safety Report 11342959 (Version 2)
Quarter: 2016Q2

REPORT INFORMATION
  Report Type: Report from Study
  Country: US (occurrence: US)
  Receive Date: 20150805
  Receipt Date: 20160614
  Transmission Date: 20160815
  Serious: Yes (Other)
  Sender: FDA-Public Use
  Company Number: US-AMGEN-USASP2015075283

PATIENT
  Age: 54 Year
  Sex: Female

DRUGS (3)
  1. NPLATE [Suspect]
     Active Substance: ROMIPLOSTIM
     Indication: IMMUNE THROMBOCYTOPENIC PURPURA
     Dosage: UNK UNK, QWK
     Route: 065
     Dates: start: 201501
  2. LOVENOX [Concomitant]
     Active Substance: ENOXAPARIN SODIUM
     Indication: HEPATIC VEIN THROMBOSIS
     Dosage: UNK, BID
  3. PREDNISONE. [Concomitant]
     Active Substance: PREDNISONE
     Dosage: 5 MG, UNK
     Route: 048

REACTIONS (24)
  - Headache [Unknown]
  - Pain [Unknown]
  - Pain in extremity [Unknown]
  - Musculoskeletal pain [Unknown]
  - Insomnia [Unknown]
  - Malaise [Unknown]
  - Platelet count abnormal [Unknown]
  - Dizziness [Unknown]
  - Overdose [Unknown]
  - Weight abnormal [Unknown]
  - Platelet count decreased [Unknown]
  - Hepatic vascular thrombosis [Unknown]
  - Arthralgia [Unknown]
  - Myalgia [Unknown]
  - Abdominal pain [Unknown]
  - Muscular weakness [Unknown]
  - Hypoaesthesia [Unknown]
  - No therapeutic response [Unknown]
  - Tooth disorder [Unknown]
  - Aphonia [Unknown]
  - Influenza like illness [Unknown]
  - Dyspepsia [Unknown]
  - Paraesthesia [Unknown]
  - Fatigue [Unknown]

NARRATIVE: CASE EVENT DATE: 20150723
